FAERS Safety Report 14190353 (Version 4)
Quarter: 2018Q1

REPORT INFORMATION
  Report Type: Spontaneous
  Country: JP (occurrence: JP)
  Receive Date: 20171115
  Receipt Date: 20180115
  Transmission Date: 20180508
  Serious: Yes (Hospitalization)
  Sender: FDA-Public Use
  Company Number: JP-009507513-1711JPN000901J

PATIENT
  Age: 5 Decade
  Sex: Female
  Weight: 70 kg

DRUGS (4)
  1. CUBICIN [Suspect]
     Active Substance: DAPTOMYCIN
     Indication: INFLAMMATION
     Dosage: 350 MG, QD
     Route: 041
     Dates: start: 20171102, end: 20171108
  2. CANCIDAS [Suspect]
     Active Substance: CASPOFUNGIN ACETATE
     Indication: PROPHYLAXIS
     Dosage: 70 MG, QD
     Route: 041
     Dates: start: 20171102, end: 20171102
  3. CANCIDAS [Suspect]
     Active Substance: CASPOFUNGIN ACETATE
     Dosage: 50 MG, QD
     Route: 041
     Dates: start: 20171103, end: 20171106
  4. MEROPEN [Concomitant]
     Active Substance: MEROPENEM
     Indication: PYREXIA
     Dosage: UNK
     Route: 041
     Dates: start: 20171102, end: 20171115

REACTIONS (3)
  - Pain [Recovered/Resolved]
  - Pyrexia [Recovered/Resolved]
  - Constipation [Recovered/Resolved]

NARRATIVE: CASE EVENT DATE: 20171103
